FAERS Safety Report 8964165 (Version 2)
Quarter: 2013Q1

REPORT INFORMATION
  Report Type: Spontaneous
  Country: BR (occurrence: BR)
  Receive Date: 20121213
  Receipt Date: 20130101
  Transmission Date: 20140127
  Serious: Yes (Hospitalization, Other)
  Sender: FDA-Public Use
  Company Number: PHHY2012BR103846

PATIENT
  Age: 61 Year
  Sex: Male
  Weight: 110 kg

DRUGS (8)
  1. DIOVAN TRIPLE [Suspect]
     Indication: BLOOD PRESSURE ABNORMAL
     Dosage: 1 DF, DAILY
     Dates: start: 20121108
  2. DIOVAN HCT [Suspect]
     Indication: HYPERTENSION
     Dosage: 1 DF, (160MG VALS/12.5MG HCTZ), DAILY
     Route: 048
     Dates: start: 20121110
  3. DIOVAN HCT [Suspect]
     Dosage: 2 DF (160/12.5MG)
  4. CITALOPRAM [Concomitant]
     Indication: SEDATION
     Dosage: 0.5 DF (20 MG), DAILY
     Route: 048
     Dates: start: 20121115
  5. NEBILET [Concomitant]
     Indication: BLOOD CHOLESTEROL ABNORMAL
     Dosage: 0.5 DF (5 MG), DAILY
     Route: 048
     Dates: start: 20121115
  6. GLIFAGE [Concomitant]
     Indication: DIABETES MELLITUS
     Dosage: 1 DF, (750 MG), DAILY
     Route: 048
     Dates: start: 20121115
  7. VYTORIN [Concomitant]
     Indication: BLOOD CHOLESTEROL ABNORMAL
     Dosage: 1 DF (10 MG EZET/20 MG SIMV), DAILY
     Route: 048
     Dates: start: 20121115
  8. LEXOTAN [Concomitant]
     Indication: SLEEP DISORDER
     Dosage: 0.5 DF (3 MG), DAILY
     Route: 048
     Dates: start: 20121115

REACTIONS (5)
  - Diverticulitis [Recovering/Resolving]
  - Cerebrovascular accident [Recovered/Resolved]
  - Blood pressure increased [Not Recovered/Not Resolved]
  - Drug ineffective [Unknown]
  - Inappropriate schedule of drug administration [Unknown]
